FAERS Safety Report 21998557 (Version 1)
Quarter: 2023Q1

REPORT INFORMATION
  Report Type: Spontaneous
  Country: IN (occurrence: IN)
  Receive Date: 20230216
  Receipt Date: 20230216
  Transmission Date: 20230418
  Serious: Yes (Other)
  Sender: FDA-Public Use
  Company Number: IN-STRIDES ARCOLAB LIMITED-2023SP002348

PATIENT
  Age: 30 Year
  Sex: Male

DRUGS (3)
  1. TENOFOVIR DISOPROXIL FUMARATE [Suspect]
     Active Substance: TENOFOVIR DISOPROXIL FUMARATE
     Indication: HIV infection
     Dosage: 300 MILLIGRAM; HIGHLY ACTIVE ANTIRETROVIRAL THERAPY
     Route: 065
  2. LAMIVUDINE [Suspect]
     Active Substance: LAMIVUDINE
     Indication: HIV infection
     Dosage: 300 MILLIGRAM; HIGHLY ACTIVE ANTIRETROVIRAL THERAPY
     Route: 065
  3. EFAVIRENZ [Suspect]
     Active Substance: EFAVIRENZ
     Indication: HIV infection
     Dosage: 600 MILLIGRAM; HIGHLY ACTIVE ANTIRETROVIRAL THERAPY
     Route: 065

REACTIONS (2)
  - Paradoxical drug reaction [Unknown]
  - Immune reconstitution inflammatory syndrome associated Kaposi^s sarcoma [Unknown]
